FAERS Safety Report 16323058 (Version 2)
Quarter: 2021Q4

REPORT INFORMATION
  Report Type: Spontaneous
  Country: ES (occurrence: ES)
  Receive Date: 20190517
  Receipt Date: 20211012
  Transmission Date: 20220303
  Serious: Yes (Other)
  Sender: FDA-Public Use
  Company Number: ES-AEMPS-486882

PATIENT
  Age: 84 Year
  Sex: Male

DRUGS (4)
  1. IBUPROFEN [Suspect]
     Active Substance: IBUPROFEN
     Indication: Arthralgia
     Dosage: 600 MILLIGRAM, TWO TIMES A DAY
     Route: 048
     Dates: start: 20190316, end: 20190318
  2. CEFUROXIME [Suspect]
     Active Substance: CEFUROXIME
     Indication: Prostatitis
     Dosage: UNK
     Route: 042
     Dates: start: 20190313, end: 20190319
  3. CETRIMONIUM BROMIDE [Suspect]
     Active Substance: CETRIMONIUM BROMIDE
     Indication: Hyperuricaemia
     Dosage: 1 MILLIGRAM, TWO TIMES A DAY
     Route: 048
     Dates: start: 20190314, end: 20190319
  4. METAMIZOLE [Suspect]
     Active Substance: METAMIZOLE
     Indication: Arthralgia
     Dosage: 2 GRAM, TWO TIMES A DAY
     Route: 042
     Dates: start: 20190311, end: 20190319

REACTIONS (1)
  - Cutaneous vasculitis [Recovered/Resolved]

NARRATIVE: CASE EVENT DATE: 20190319
